FAERS Safety Report 5377876-7 (Version None)
Quarter: 2007Q2

REPORT INFORMATION
  Report Type: 
  Country: None (occurrence: None)
  Receive Date: 20070629
  Receipt Date: 20070619
  Transmission Date: 20071010
  Serious: Yes (Hospitalization)
  Sender: FDA-Public Use
  Company Number: TPA2007AP01189

PATIENT
  Age: 70 Year
  Sex: Male
  Weight: 71.6683 kg

DRUGS (22)
  1. PIOGLITAZONE HCL [Suspect]
     Indication: GLUCOSE TOLERANCE IMPAIRED
     Dosage: 3 TABLETS QAM, PER ORAL
     Route: 048
  2. CITALOPRAM HYDROBROMIDE [Concomitant]
  3. DICLOFENAC (DICLOFENAC) [Concomitant]
  4. DOXAZOSIN MESYLATE [Concomitant]
  5. FORMOTEROL FUMARATE (FORMOTEROL FUMARATE) (INHALANT) [Concomitant]
  6. LEVALBUTEROL (LEVOSALBUTAMOL HYDROCHLORIDE) [Concomitant]
  7. MOMETASONE FUROATE [Concomitant]
  8. OMEPRAZOLE(OMEPRAZOLE) (NASAL DROPS (INCLUDING NASAL SPRAY)) [Concomitant]
  9. THEOPHYLLINE [Concomitant]
  10. TRAZODONE HCL [Concomitant]
  11. TRIAMCINOLONE (TRIAMCINOLONE) (INHALANT) [Concomitant]
  12. VARDENAFIL HCL (VARDENAFIL HYDROCHLORIDE) (TABLETS) [Concomitant]
  13. ZOCOR [Concomitant]
  14. MULTIVITAMIN [Concomitant]
  15. PROTEIN WHEY (PROTEIN SUPPLEMENTS) [Concomitant]
  16. ASCORBIC ACID [Concomitant]
  17. GARLIC (ALLIUM SATIVUM) [Concomitant]
  18. LECITHIN (LECITHIN) [Concomitant]
  19. FISH OIL (FISH OIL) [Concomitant]
  20. COD LIVER OIL FORTIFIED TAB [Concomitant]
  21. NORTRIPTYLINE HCL [Concomitant]
  22. OMEPRAZOLE [Concomitant]

REACTIONS (2)
  - NASAL SEPTUM DEVIATION [None]
  - POST PROCEDURAL HAEMORRHAGE [None]
